FAERS Safety Report 14229725 (Version 2)
Quarter: 2017Q4

REPORT INFORMATION
  Report Type: Spontaneous
  Country: JP (occurrence: JP)
  Receive Date: 20171128
  Receipt Date: 20171211
  Transmission Date: 20180321
  Serious: Yes (Other)
  Sender: FDA-Public Use
  Company Number: PHJP2017JP034547

PATIENT
  Age: 66 Year
  Sex: Male

DRUGS (1)
  1. VOTRIENT [Suspect]
     Active Substance: PAZOPANIB HYDROCHLORIDE
     Indication: RENAL CELL CARCINOMA STAGE IV
     Dosage: 400 MG, QD
     Route: 048
     Dates: start: 201708

REACTIONS (2)
  - Alanine aminotransferase increased [Unknown]
  - Necrosis [Unknown]

NARRATIVE: CASE EVENT DATE: 201709
